FAERS Safety Report 5256896-7 (Version None)
Quarter: 2007Q1

REPORT INFORMATION
  Report Type: 
  Country: None (occurrence: None)
  Receive Date: 20070307
  Receipt Date: 20070228
  Transmission Date: 20070707
  Serious: Yes (Other)
  Sender: FDA-Public Use
  Company Number: PHBS2006DE15394

PATIENT
  Age: 71 Year
  Sex: Female

DRUGS (2)
  1. ZOMETA [Suspect]
     Indication: BREAST CANCER
     Dates: start: 20020701, end: 20040201
  2. BONDRONAT [Suspect]
     Indication: BREAST CANCER
     Dates: start: 20040201

REACTIONS (3)
  - BONE TRIMMING [None]
  - OSTEONECROSIS [None]
  - TOOTH EXTRACTION [None]
